FAERS Safety Report 8960434 (Version 2)
Quarter: 2012Q4

REPORT INFORMATION
  Report Type: 
  Country: JP (occurrence: JP)
  Receive Date: 20121211
  Receipt Date: 20121218
  Transmission Date: 20130627
  Serious: Yes (Other)
  Sender: FDA-Public Use
  Company Number: JP-PFIZER INC-2012311978

PATIENT
  Age: 48 Year
  Sex: Female

DRUGS (2)
  1. LYRICA [Suspect]
     Indication: PAIN
     Dosage: 75 mg, 1x/day
     Route: 048
  2. LYRICA [Suspect]
     Indication: NUMBNESS

REACTIONS (4)
  - Pharyngeal oedema [Recovered/Resolved]
  - Laryngeal pain [Recovered/Resolved]
  - Larynx irritation [Recovered/Resolved]
  - Hypoaesthesia oral [Recovered/Resolved]
